FAERS Safety Report 21180588 (Version 1)
Quarter: 2022Q3

REPORT INFORMATION
  Report Type: Spontaneous
  Country: US (occurrence: US)
  Receive Date: 20220806
  Receipt Date: 20220806
  Transmission Date: 20221027
  Serious: No
  Sender: FDA-Public Use
  Company Number: US-SA-SAC20220729000652

PATIENT
  Sex: Male

DRUGS (1)
  1. DUPIXENT [Suspect]
     Active Substance: DUPILUMAB
     Indication: Dermatitis atopic
     Dosage: 300 MG, QOW
     Route: 058

REACTIONS (8)
  - Scratch [Unknown]
  - Dry skin [Unknown]
  - Irritability [Unknown]
  - Hyperchlorhydria [Unknown]
  - Skin disorder [Unknown]
  - Skin lesion [Unknown]
  - Skin exfoliation [Unknown]
  - Rash [Unknown]
